FAERS Safety Report 12010134 (Version 1)
Quarter: 2016Q1

REPORT INFORMATION
  Report Type: Other
  Country: DE (occurrence: DE)
  Receive Date: 20160205
  Receipt Date: 20160205
  Transmission Date: 20160526
  Serious: Yes (Hospitalization)
  Sender: FDA-Public Use
  Company Number: DE-MYLANLABS-2016M1004189

PATIENT

DRUGS (3)
  1. MAXIM /01257001/ [Interacting]
     Active Substance: DIENOGEST\ETHINYL ESTRADIOL
     Indication: ORAL CONTRACEPTION
     Dosage: 1 DF, UNK (1 TBL/D)
     Route: 048
  2. LAMOTRIGINE. [Interacting]
     Active Substance: LAMOTRIGINE
     Indication: IDIOPATHIC GENERALISED EPILEPSY
     Dosage: 150 MG, BID (DAILY DOSE: 300 MG MILLGRAM(S) EVERY DAYS)
     Route: 048
     Dates: start: 2001
  3. INSULIN [Suspect]
     Active Substance: INSULIN NOS
     Indication: TYPE 1 DIABETES MELLITUS
     Dosage: UNK
     Route: 058
     Dates: start: 2007

REACTIONS (6)
  - Tongue biting [None]
  - Skin abrasion [None]
  - Anticonvulsant drug level decreased [Unknown]
  - Intraocular haematoma [None]
  - Fall [Unknown]
  - Seizure [Unknown]

NARRATIVE: CASE EVENT DATE: 20151020
